FAERS Safety Report 6650121-8 (Version None)
Quarter: 2010Q1

REPORT INFORMATION
  Report Type: 
  Country: None (occurrence: None)
  Receive Date: 20100325
  Receipt Date: 20090319
  Transmission Date: 20100710
  Serious: No
  Sender: FDA-Public Use
  Company Number: US-KINGPHARMUSA00001-K200900327

PATIENT
  Sex: Female

DRUGS (1)
  1. ALTACE [Suspect]
     Dosage: UNK
     Route: 048
     Dates: start: 20090317

REACTIONS (2)
  - ERYTHEMA [None]
  - RASH ERYTHEMATOUS [None]
